FAERS Safety Report 8550268 (Version 6)
Quarter: 2012Q4

REPORT INFORMATION
  Report Type: Report from Study
  Country: CA (occurrence: CA)
  Receive Date: 20120507
  Receipt Date: 20121210
  Transmission Date: 20130627
  Serious: Yes (Other)
  Sender: FDA-Public Use
  Company Number: CA-ROCHE-1065451

PATIENT
  Age: 60 Year
  Sex: Female

DRUGS (1)
  1. OMALIZUMAB [Suspect]
     Indication: ASTHMA
     Route: 058
     Dates: start: 20100415

REACTIONS (21)
  - Psoriasis [Unknown]
  - Wheezing [Unknown]
  - Bronchitis [Unknown]
  - Nasopharyngitis [Recovered/Resolved]
  - Productive cough [Unknown]
  - Visual impairment [Unknown]
  - Respiratory tract congestion [Not Recovered/Not Resolved]
  - Dizziness [Recovered/Resolved]
  - Headache [Unknown]
  - Bronchomalacia [Unknown]
  - Sputum discoloured [Unknown]
  - Candidiasis [Recovered/Resolved]
  - Sleep apnoea syndrome [Unknown]
  - Lacrimation increased [Unknown]
  - Nasal congestion [Unknown]
  - Nausea [Unknown]
  - Urinary tract infection [Unknown]
  - Discomfort [Unknown]
  - Musculoskeletal pain [Unknown]
  - Arthralgia [Unknown]
  - Joint swelling [Unknown]
